FAERS Safety Report 6738347-6 (Version None)
Quarter: 2010Q2

REPORT INFORMATION
  Report Type: 
  Country: None (occurrence: None)
  Receive Date: 20100520
  Receipt Date: 20100510
  Transmission Date: 20101027
  Serious: Yes (Other)
  Sender: FDA-Public Use
  Company Number: CTI_01191_2010

PATIENT
  Age: 63 Year
  Sex: Female

DRUGS (1)
  1. SPECTRACEF [Suspect]
     Indication: SKIN INFECTION
     Dosage: DF ORAL
     Route: 048
     Dates: start: 20090926, end: 20090930

REACTIONS (1)
  - HEPATITIS [None]
